FAERS Safety Report 4707851-4 (Version None)
Quarter: 2005Q3

REPORT INFORMATION
  Report Type: 
  Country: None (occurrence: None)
  Receive Date: 20050701
  Receipt Date: 20050622
  Transmission Date: 20060218
  Serious: Yes (Other)
  Sender: FDA-Public Use
  Company Number: 2005092591

PATIENT
  Age: 79 Year
  Sex: Female

DRUGS (1)
  1. LATANOPROST [Suspect]
     Indication: GLAUCOMA
     Dosage: SINGLE INTERVAL:  EVERYDAY), OPHTHALMIC
     Route: 047
     Dates: start: 20001023, end: 20030826

REACTIONS (6)
  - BLINDNESS UNILATERAL [None]
  - CONDITION AGGRAVATED [None]
  - GLAUCOMA [None]
  - HAEMODIALYSIS [None]
  - RENAL DISORDER [None]
  - RENAL FAILURE [None]
